FAERS Safety Report 5274191-7 (Version None)
Quarter: 2007Q1

REPORT INFORMATION
  Report Type: 
  Country: None (occurrence: None)
  Receive Date: 20070323
  Receipt Date: 20070313
  Transmission Date: 20070707
  Serious: Yes (Other)
  Sender: FDA-Public Use
  Company Number: PHHO2007AR04816

PATIENT
  Age: 90 Year
  Sex: Female

DRUGS (1)
  1. ZELMAC / HTF 919A [Suspect]

REACTIONS (2)
  - APHASIA [None]
  - TRACHEAL OPERATION [None]
